FAERS Safety Report 21210761 (Version 1)
Quarter: 2022Q3

REPORT INFORMATION
  Report Type: Spontaneous
  Country: US (occurrence: US)
  Receive Date: 20220815
  Receipt Date: 20220815
  Transmission Date: 20221026
  Serious: Yes (Disabling, Other)
  Sender: FDA-Public Use
  Company Number: US-SA-SAC20220811000269

PATIENT

DRUGS (1)
  1. ZANTAC [Suspect]
     Active Substance: RANITIDINE HYDROCHLORIDE
     Dosage: UNK
     Route: 048

REACTIONS (6)
  - Lung neoplasm malignant [Unknown]
  - Disability [Unknown]
  - Pain [Unknown]
  - Injury [Unknown]
  - Anhedonia [Unknown]
  - Anxiety [Unknown]
